FAERS Safety Report 7007042-0 (Version None)
Quarter: 2010Q3

REPORT INFORMATION
  Report Type: 
  Country: None (occurrence: None)
  Receive Date: 20100922
  Receipt Date: 20100920
  Transmission Date: 20110219
  Serious: Yes (Hospitalization)
  Sender: FDA-Public Use
  Company Number: IT-ROXANE LABORATORIES, INC.-2010-DE-04653GD

PATIENT
  Age: 21 Year
  Sex: Female

DRUGS (5)
  1. PREDNISONE [Suspect]
     Indication: CROHN'S DISEASE
     Dosage: 1 MG/KG
     Route: 048
  2. MESALAZINE [Suspect]
     Indication: CROHN'S DISEASE
     Dosage: 2400 MG
     Route: 048
     Dates: start: 20070701
  3. ENTOCORT EC [Suspect]
     Indication: CROHN'S DISEASE
     Dosage: 13.5 MG
     Dates: start: 20070701
  4. 6-MERCAPTOPURINE [Suspect]
     Indication: CROHN'S DISEASE
     Dosage: 50 MG
     Route: 048
     Dates: start: 20070901, end: 20081201
  5. ANTI-TUMOR NECROSIS FACTOR MONOCLON. ANTIBODY [Suspect]
     Indication: CROHN'S DISEASE
     Dates: start: 20081201, end: 20090501

REACTIONS (1)
  - ACUTE MYELOID LEUKAEMIA [None]
